FAERS Safety Report 15569232 (Version 3)
Quarter: 2019Q1

REPORT INFORMATION
  Report Type: Spontaneous
  Country: US (occurrence: US)
  Receive Date: 20181031
  Receipt Date: 20190305
  Transmission Date: 20190417
  Serious: Yes (Hospitalization, Other)
  Sender: FDA-Public Use
  Company Number: US-ORPHAN EUROPE-2058256

PATIENT
  Age: 5 Year
  Sex: Male
  Weight: 22.1 kg

DRUGS (1)
  1. CARBAGLU [Suspect]
     Active Substance: CARGLUMIC ACID
     Indication: HYPERGLYCINAEMIA
     Route: 050
     Dates: start: 201701

REACTIONS (4)
  - Seizure [Unknown]
  - Cerebrovascular accident [Unknown]
  - Off label use [Not Recovered/Not Resolved]
  - Viral infection [Unknown]

NARRATIVE: CASE EVENT DATE: 201701
